FAERS Safety Report 10931957 (Version 1)
Quarter: 2015Q1

REPORT INFORMATION
  Report Type: Report from Study
  Country: ES (occurrence: ES)
  Receive Date: 20150319
  Receipt Date: 20150319
  Transmission Date: 20150721
  Serious: Yes (Hospitalization)
  Sender: FDA-Public Use
  Company Number: ES-MYLANLABS-2015M1008927

PATIENT

DRUGS (4)
  1. METHOTREXATE [Suspect]
     Active Substance: METHOTREXATE
     Dosage: 4.5 G/M2 IN 23.5 HOURS
     Route: 065
  2. METHOTREXATE [Suspect]
     Active Substance: METHOTREXATE
     Indication: ACUTE LYMPHOCYTIC LEUKAEMIA
     Dosage: 5 G/M2 (6.2G) ADMINISTERED IN 4 HOURS (INFUSION)
     Route: 042
  3. FOLINIC ACID [Concomitant]
     Active Substance: LEUCOVORIN
     Indication: DRUG TOXICITY PROPHYLAXIS
     Dosage: 15 MG/M2 EVERY 6H
     Route: 065
  4. METHOTREXATE [Suspect]
     Active Substance: METHOTREXATE
     Dosage: 0.5 G/M2 IN 30 MINUTES
     Route: 065

REACTIONS (7)
  - Skin hyperpigmentation [Unknown]
  - Blood creatinine increased [Unknown]
  - Mucosal inflammation [Unknown]
  - Hepatic enzyme increased [Unknown]
  - Gastrointestinal disorder [Unknown]
  - Pancytopenia [Unknown]
  - Toxicity to various agents [Recovering/Resolving]
